FAERS Safety Report 6749750-2 (Version None)
Quarter: 2010Q2

REPORT INFORMATION
  Report Type: 
  Country: None (occurrence: None)
  Receive Date: 20100527
  Receipt Date: 20100527
  Transmission Date: 20101027
  Serious: Yes (Other)
  Sender: FDA-Public Use
  Company Number: None

PATIENT
  Age: 45 Year
  Sex: Female
  Weight: 95.2554 kg

DRUGS (1)
  1. LYRICA [Suspect]
     Indication: FIBROMYALGIA
     Dosage: 50 MG 3 TIMES A  DAY  PO
     Route: 048
     Dates: start: 20100505, end: 20100513

REACTIONS (5)
  - EATING DISORDER [None]
  - HEADACHE [None]
  - JOINT SWELLING [None]
  - MOBILITY DECREASED [None]
  - WEIGHT INCREASED [None]
